FAERS Safety Report 10880189 (Version 1)
Quarter: 2015Q1

REPORT INFORMATION
  Report Type: Spontaneous
  Country: US (occurrence: US)
  Receive Date: 20150302
  Receipt Date: 20150302
  Transmission Date: 20150721
  Serious: Yes (Death)
  Sender: FDA-Public Use
  Company Number: US-ACTELION-A-US2015-113850

PATIENT
  Age: 52 Year
  Sex: Female

DRUGS (3)
  1. LETAIRIS [Concomitant]
     Active Substance: AMBRISENTAN
  2. REVATIO [Concomitant]
     Active Substance: SILDENAFIL CITRATE
  3. VENTAVIS [Suspect]
     Active Substance: ILOPROST
     Indication: PULMONARY ARTERIAL HYPERTENSION
     Dosage: 5 MCG, 6-9X DAILY
     Route: 055
     Dates: start: 20100728

REACTIONS (1)
  - Death [Fatal]

NARRATIVE: CASE EVENT DATE: 20150211
